FAERS Safety Report 17244209 (Version 2)
Quarter: 2020Q1

REPORT INFORMATION
  Report Type: Spontaneous
  Country: US (occurrence: US)
  Receive Date: 20200107
  Receipt Date: 20200108
  Transmission Date: 20200409
  Serious: No
  Sender: FDA-Public Use
  Company Number: US-009507513-2001USA001632

PATIENT
  Age: 45 Year
  Sex: Female

DRUGS (2)
  1. KEYTRUDA [Suspect]
     Active Substance: PEMBROLIZUMAB
     Indication: COLON CANCER METASTATIC
     Dosage: UNSPECIFIED DOSE EVERY THREE WEEKS
     Dates: start: 20191113
  2. KEYTRUDA [Suspect]
     Active Substance: PEMBROLIZUMAB
     Indication: HEPATIC CANCER METASTATIC

REACTIONS (9)
  - Rash [Unknown]
  - Tumour marker increased [Unknown]
  - Decreased appetite [Unknown]
  - Thyroiditis [Unknown]
  - Diarrhoea [Unknown]
  - Pulmonary pain [Unknown]
  - Nausea [Unknown]
  - Product use in unapproved indication [Unknown]
  - Dyspnoea [Unknown]

NARRATIVE: CASE EVENT DATE: 20191113
